FAERS Safety Report 6636968-2 (Version None)
Quarter: 2010Q1

REPORT INFORMATION
  Report Type: 
  Country: None (occurrence: None)
  Receive Date: 20100316
  Receipt Date: 20100304
  Transmission Date: 20100710
  Serious: Yes (Other)
  Sender: FDA-Public Use
  Company Number: BR-MPIJNJ-2010-01516

PATIENT

DRUGS (1)
  1. VELCADE [Suspect]
     Indication: LUNG TRANSPLANT REJECTION
     Dosage: 1.3 MG/M2, UNK
     Dates: start: 20090101

REACTIONS (3)
  - BRONCHOPNEUMONIA [None]
  - CYTOMEGALOVIRUS INFECTION [None]
  - HYPOXIA [None]
